FAERS Safety Report 22384992 (Version 1)
Quarter: 2023Q2

REPORT INFORMATION
  Report Type: Spontaneous
  Country: US (occurrence: US)
  Receive Date: 20230530
  Receipt Date: 20230530
  Transmission Date: 20230721
  Serious: No
  Sender: FDA-Public Use
  Company Number: US-BAYER-2023A069439

PATIENT
  Age: 80 Year
  Sex: Female

DRUGS (1)
  1. ASTEPRO [Suspect]
     Active Substance: AZELASTINE HYDROCHLORIDE
     Indication: Allergic sinusitis
     Dosage: 1 TO 2 SPRAY IN EACH NOSTRIL
     Dates: start: 202301, end: 202305

REACTIONS (1)
  - Therapeutic response shortened [Not Recovered/Not Resolved]

NARRATIVE: CASE EVENT DATE: 20230101
